FAERS Safety Report 12988068 (Version 1)
Quarter: 2016Q4

REPORT INFORMATION
  Report Type: Spontaneous
  Country: AU (occurrence: AU)
  Receive Date: 20161130
  Receipt Date: 20161130
  Transmission Date: 20170207
  Serious: Yes (Hospitalization, Other)
  Sender: FDA-Public Use
  Company Number: AU-MYLANLABS-2016M1051388

PATIENT

DRUGS (5)
  1. ADZOPIP [Concomitant]
     Indication: EVIDENCE BASED TREATMENT
     Route: 065
  2. MELPHALAN [Suspect]
     Active Substance: MELPHALAN
     Indication: PLASMA CELL MYELOMA
     Dosage: 200 MG/M2
     Route: 065
  3. LENALIDOMIDE [Concomitant]
     Active Substance: LENALIDOMIDE
     Indication: PLASMA CELL MYELOMA
     Dosage: 25MG, FROM D1 TO D21; THE DOSE DECREASED TO 15MG AFTER CYCLE 2
     Route: 065
  4. OLMESARTAN MEDOXOMIL. [Concomitant]
     Active Substance: OLMESARTAN MEDOXOMIL
     Indication: HYPERTENSION
     Route: 065
  5. LENALIDOMIDE [Concomitant]
     Active Substance: LENALIDOMIDE
     Dosage: 15MG AFTER CYCLE 2
     Route: 065

REACTIONS (2)
  - Neuralgic amyotrophy [Recovering/Resolving]
  - Engraftment syndrome [Recovering/Resolving]
